FAERS Safety Report 10361963 (Version 1)
Quarter: 2014Q3

REPORT INFORMATION
  Report Type: Spontaneous
  Country: BR (occurrence: BR)
  Receive Date: 20140805
  Receipt Date: 20140805
  Transmission Date: 20150326
  Serious: Yes (Other)
  Sender: FDA-Public Use
  Company Number: BR-JNJFOC-20140715778

PATIENT
  Age: 40 Year
  Sex: Female
  Weight: 57 kg

DRUGS (6)
  1. COLTRAX [Concomitant]
     Active Substance: THIOCOLCHICOSIDE
     Indication: SPINAL PAIN
     Route: 065
     Dates: start: 20140718, end: 20140719
  2. ROXITHROMYCIN [Concomitant]
     Active Substance: ROXITHROMYCIN
     Indication: SPINAL PAIN
     Route: 065
     Dates: start: 20140718, end: 20140719
  3. TYLEX [Suspect]
     Active Substance: ACETAMINOPHEN\CODEINE PHOSPHATE
     Indication: SPINAL PAIN
     Route: 065
     Dates: start: 20140718, end: 20140719
  4. DORFLEX [Suspect]
     Active Substance: CAFFEINE\DIPYRONE\ORPHENADRINE
     Indication: PRODUCT USED FOR UNKNOWN INDICATION
     Route: 065
  5. OMEPRAZOLE. [Suspect]
     Active Substance: OMEPRAZOLE
     Indication: ABDOMINAL DISCOMFORT
     Route: 065
     Dates: start: 20140719
  6. CIPROFLOXACIN HYDROCHLORIDE. [Concomitant]
     Active Substance: CIPROFLOXACIN HYDROCHLORIDE
     Indication: SPINAL PAIN
     Route: 065
     Dates: start: 20140718, end: 20140719

REACTIONS (11)
  - Dyspnoea [Recovered/Resolved]
  - Drug prescribing error [Recovered/Resolved]
  - Drug dispensing error [Recovered/Resolved]
  - Hypoaesthesia [Recovered/Resolved]
  - Panic reaction [Recovered/Resolved]
  - Derealisation [Recovered/Resolved]
  - Thinking abnormal [Recovered/Resolved]
  - Abdominal discomfort [Recovered/Resolved]
  - Anxiety [Recovered/Resolved]
  - Decreased appetite [Recovered/Resolved]
  - Hyperhidrosis [Recovered/Resolved]

NARRATIVE: CASE EVENT DATE: 20140719
